FAERS Safety Report 9259557 (Version 2)
Quarter: 2013Q2

REPORT INFORMATION
  Report Type: Spontaneous
  Country: BR (occurrence: BR)
  Receive Date: 20130429
  Receipt Date: 20130530
  Transmission Date: 20140414
  Serious: Yes (Other)
  Sender: FDA-Public Use
  Company Number: BR-AMGEN-BRASP2012018664

PATIENT
  Age: 67 Year
  Sex: Female
  Weight: 62 kg

DRUGS (16)
  1. ENBREL [Suspect]
     Indication: RHEUMATOID ARTHRITIS
     Dosage: 50 MG, 1X/WEEK
     Route: 058
     Dates: start: 201202, end: 201302
  2. ENBREL [Suspect]
     Indication: PSORIASIS
     Dosage: UNK
  3. ENBREL [Suspect]
     Dosage: UNK
  4. ENBREL [Suspect]
     Dosage: 25 MG, 2X/WEEK
     Dates: start: 201202, end: 201204
  5. PREDNISOLONE [Concomitant]
     Indication: PSORIASIS
     Dosage: UNK
  6. METHOTREXATE [Concomitant]
     Indication: RHEUMATOID ARTHRITIS
     Dosage: UNK
  7. MAREVAN [Concomitant]
     Indication: COAGULOPATHY
     Dosage: UNK
     Dates: start: 2009
  8. MAREVAN [Concomitant]
     Indication: BLOOD DISORDER
  9. AMLODIPINE BESILATE [Concomitant]
     Indication: HYPERTENSION
     Dosage: UNK
     Dates: start: 2011
  10. PURAN T4 [Concomitant]
     Indication: THYROID DISORDER
     Dosage: UNK
     Dates: start: 2010
  11. CALTRATE                           /07357001/ [Concomitant]
     Dosage: UNK
  12. PREDSIM [Concomitant]
     Indication: RHEUMATOID ARTHRITIS
     Dosage: UNK
     Dates: start: 2002
  13. SELOZOK [Concomitant]
     Indication: ARRHYTHMIA
     Dosage: UNK
     Dates: start: 2011
  14. SIMVASTATIN [Concomitant]
     Indication: BLOOD CHOLESTEROL INCREASED
     Dosage: UNK
     Dates: start: 201201
  15. SIMVASTATIN [Concomitant]
     Indication: BLOOD CHOLESTEROL
  16. VERTIX [Concomitant]
     Indication: DIZZINESS
     Dosage: UNK

REACTIONS (15)
  - Joint injury [Unknown]
  - Paralysis [Not Recovered/Not Resolved]
  - Neck pain [Unknown]
  - Psoriasis [Unknown]
  - Drug ineffective [Not Recovered/Not Resolved]
  - Gait disturbance [Not Recovered/Not Resolved]
  - Pain [Unknown]
  - Swelling [Unknown]
  - Fall [Unknown]
  - Upper limb fracture [Unknown]
  - Foot fracture [Unknown]
  - Arthralgia [Not Recovered/Not Resolved]
  - Pain in extremity [Not Recovered/Not Resolved]
  - Joint swelling [Not Recovered/Not Resolved]
  - Injection site erythema [Recovering/Resolving]
